FAERS Safety Report 13745872 (Version 2)
Quarter: 2017Q3

REPORT INFORMATION
  Report Type: Spontaneous
  Country: US (occurrence: US)
  Receive Date: 20170712
  Receipt Date: 20170811
  Transmission Date: 20171127
  Serious: No
  Sender: FDA-Public Use
  Company Number: US-GLAXOSMITHKLINE-US2017104464

PATIENT
  Sex: Female

DRUGS (1)
  1. TRANSDERM SCOP [Suspect]
     Active Substance: SCOPOLAMINE
     Indication: DIZZINESS
     Dosage: UNK, QD
     Dates: start: 2017

REACTIONS (11)
  - Inappropriate schedule of drug administration [Unknown]
  - Feeling drunk [Unknown]
  - Incorrect drug administration duration [Unknown]
  - Drug ineffective for unapproved indication [Unknown]
  - Application site rash [Not Recovered/Not Resolved]
  - Nausea [Unknown]
  - Malaise [Unknown]
  - Decreased appetite [Unknown]
  - Product use in unapproved indication [Unknown]
  - Feeling abnormal [Unknown]
  - Thinking abnormal [Recovered/Resolved]
